FAERS Safety Report 11820628 (Version 1)
Quarter: 2015Q4

REPORT INFORMATION
  Report Type: Spontaneous
  Country: US (occurrence: US)
  Receive Date: 20151210
  Receipt Date: 20151210
  Transmission Date: 20160305
  Serious: No
  Sender: FDA-Public Use
  Company Number: US-JNJFOC-20150520992

PATIENT
  Sex: Male

DRUGS (9)
  1. IMBRUVICA [Suspect]
     Active Substance: IBRUTINIB
     Indication: CHRONIC LYMPHOCYTIC LEUKAEMIA
     Dosage: EXPDT=01-JUL-2015
     Route: 048
     Dates: start: 201504
  2. IMBRUVICA [Suspect]
     Active Substance: IBRUTINIB
     Indication: WALDENSTROM^S MACROGLOBULINAEMIA
     Dosage: EXPDT=01-JUL-2015
     Route: 048
     Dates: start: 201504
  3. IMBRUVICA [Suspect]
     Active Substance: IBRUTINIB
     Indication: WALDENSTROM^S MACROGLOBULINAEMIA
     Route: 048
  4. COREG [Concomitant]
     Active Substance: CARVEDILOL
     Route: 065
  5. IMBRUVICA [Suspect]
     Active Substance: IBRUTINIB
     Indication: CHRONIC LYMPHOCYTIC LEUKAEMIA
     Route: 048
  6. DILANTIN D.A. [Interacting]
     Active Substance: PHENYTOIN SODIUM
     Indication: EPILEPSY
     Route: 065
  7. KEPPRA [Concomitant]
     Active Substance: LEVETIRACETAM
     Route: 065
  8. ZOLOFT [Concomitant]
     Active Substance: SERTRALINE HYDROCHLORIDE
     Indication: INSOMNIA
     Route: 065
  9. LISINOPRIL. [Concomitant]
     Active Substance: LISINOPRIL
     Route: 065

REACTIONS (13)
  - Drug interaction [Recovered/Resolved]
  - Blood iron decreased [Recovering/Resolving]
  - Insomnia [Recovering/Resolving]
  - White blood cell count decreased [Recovering/Resolving]
  - Swelling face [Recovered/Resolved]
  - Haemoglobin decreased [Recovering/Resolving]
  - Stomatitis [Recovered/Resolved]
  - Haematocrit decreased [Recovering/Resolving]
  - Anticonvulsant drug level decreased [Recovered/Resolved]
  - Accidental overdose [Recovered/Resolved]
  - Heart rate decreased [Recovering/Resolving]
  - Red blood cell count decreased [Recovering/Resolving]
  - Haemoptysis [Recovered/Resolved]
